FAERS Safety Report 10386063 (Version 1)
Quarter: 2014Q1

REPORT INFORMATION
  Report Type: Spontaneous
  Country: US (occurrence: None)
  Receive Date: 20140306
  Receipt Date: 20140306
  Transmission Date: 20141002
  Serious: Yes (Other)
  Sender: FDA-Public Use
  Company Number: 163-21880-13062796

PATIENT
  Age: 87 Year
  Sex: Male
  Weight: 75.75 kg

DRUGS (19)
  1. REVLIMIB (LENALIDOMIDE) (25 MILLIGRAM, CAPSULES) [Suspect]
     Indication: PLASMA CELL MYELOMA
     Route: 048
     Dates: start: 20100723
  2. COREG (CARVEDILOL) [Concomitant]
  3. XANAX (ALPRAZOLAM) (TABLETS) [Concomitant]
  4. REFRESH CLASSIC (CARMELLOSE SODIUM) (EYE DROPS) [Concomitant]
  5. COUMADIN (WARFARIN SODIUM) (TABLETS) [Concomitant]
  6. TRAVATAN (TRAVOPROST) (EYE DROPS) [Concomitant]
  7. AZOPT(BRINZOLAMIDE) (EYE DROPS) [Concomitant]
  8. TRICOR (FENOFIBRATE) (TABLETS) [Concomitant]
  9. MIRALAX (MACROGGOL) (POWDER) [Concomitant]
  10. CALCIUM [Concomitant]
  11. TYLENOL PM EXTRA STRENGTH (DOZOL) (TABLETS) [Concomitant]
  12. ASPIRIN LOW DOSE (ACETYLSALICYLIC ACID) [Concomitant]
  13. DULCOLAX (BISACODYL) [Concomitant]
  14. AMBIEN (ZOLPIDEM TARTRATE) [Concomitant]
  15. ATIVAN (LORAZEPAM) [Concomitant]
  16. DIPHENOXYLATE-ATROPINE (DIPHENOXYLATE W/ATROPINE SULFATE) [Concomitant]
  17. FLAGYL (METRONIDAZOLE) [Concomitant]
  18. HYDROCODONE-ACETAMINOPHEN (VICODIN) [Concomitant]
  19. DEXAMETHASONE [Concomitant]

REACTIONS (5)
  - Pancytopenia [None]
  - Herpes zoster [None]
  - Malaise [None]
  - Irritability [None]
  - Fatigue [None]
